FAERS Safety Report 10399209 (Version 4)
Quarter: 2015Q1

REPORT INFORMATION
  Report Type: Spontaneous
  Country: RO (occurrence: RO)
  Receive Date: 20140821
  Receipt Date: 20150120
  Transmission Date: 20150720
  Serious: Yes (Other)
  Sender: FDA-Public Use
  Company Number: RO-JNJFOC-20140716329

PATIENT
  Sex: Female

DRUGS (4)
  1. DOCETAXEL. [Suspect]
     Active Substance: DOCETAXEL
     Indication: BREAST CANCER
     Dosage: ON DAY 1 OF A 21-DAY, 4 CYCLES
     Route: 042
  2. BALUGRASTIM [Suspect]
     Active Substance: BALUGRASTIM
     Indication: BREAST CANCER
     Route: 058
  3. PEGFILGRASTIM [Suspect]
     Active Substance: PEGFILGRASTIM
     Indication: BREAST CANCER
     Route: 058
  4. DOXORUBICIN HYDROCHLORIDE. [Suspect]
     Active Substance: DOXORUBICIN HYDROCHLORIDE
     Indication: BREAST CANCER
     Dosage: ON DAY 1 OF A 21-DAY, 4 CYCLES
     Route: 042

REACTIONS (11)
  - Alopecia [Unknown]
  - Headache [Unknown]
  - Febrile neutropenia [Unknown]
  - Diarrhoea [Unknown]
  - Decreased appetite [Unknown]
  - Thrombocytopenia [Unknown]
  - Bone pain [Unknown]
  - Neutropenia [Unknown]
  - Asthenia [Unknown]
  - Leukopenia [Unknown]
  - Nausea [Unknown]
